FAERS Safety Report 9683559 (Version 3)
Quarter: 2013Q4

REPORT INFORMATION
  Report Type: Spontaneous
  Country: CH (occurrence: CH)
  Receive Date: 20131112
  Receipt Date: 20131121
  Transmission Date: 20140711
  Serious: Yes (Other)
  Sender: FDA-Public Use
  Company Number: CH-JNJFOC-20130608481

PATIENT
  Age: 81 Year
  Sex: Male

DRUGS (9)
  1. XARELTO [Suspect]
     Indication: THROMBOSIS PROPHYLAXIS
     Route: 048
     Dates: start: 20130125, end: 20130219
  2. XARELTO [Suspect]
     Indication: HIP ARTHROPLASTY
     Route: 048
     Dates: start: 20130125, end: 20130219
  3. CANDESARTAN CILEXETIL W/HYDROCHLOROTHIAZIDE [Concomitant]
     Dosage: 1/2-0-0
     Route: 065
  4. DUODART [Concomitant]
     Route: 065
  5. TORASEMID [Concomitant]
     Route: 065
  6. MOVICOL [Concomitant]
     Route: 065
  7. OLFEN [Concomitant]
     Route: 065
  8. PARACETAMOL [Concomitant]
     Route: 065
  9. CLEXANE [Concomitant]
     Route: 065

REACTIONS (4)
  - Liver function test abnormal [Unknown]
  - Right ventricular failure [Unknown]
  - Cardiac tamponade [Unknown]
  - Myocardial infarction [Unknown]
